FAERS Safety Report 5896177-1 (Version None)
Quarter: 2008Q3

REPORT INFORMATION
  Report Type: 
  Country: None (occurrence: None)
  Receive Date: 20080924
  Receipt Date: 20071217
  Transmission Date: 20090109
  Serious: Yes (Other)
  Sender: FDA-Public Use
  Company Number: US-ASTRAZENECA-2007UW05557

PATIENT
  Age: 12937 Day
  Sex: Female

DRUGS (2)
  1. SEROQUEL [Suspect]
     Indication: BIPOLAR DISORDER
     Dosage: 25-200MG
     Route: 048
     Dates: start: 19990823, end: 20061201
  2. SEROQUEL [Suspect]
     Indication: DEPRESSION
     Dosage: 25-200MG
     Route: 048
     Dates: start: 19990823, end: 20061201

REACTIONS (1)
  - PANCREATITIS ACUTE [None]
